FAERS Safety Report 4703990-2 (Version None)
Quarter: 2005Q2

REPORT INFORMATION
  Report Type: 
  Country: None (occurrence: None)
  Receive Date: 20050628
  Receipt Date: 20050613
  Transmission Date: 20051028
  Serious: Yes (Hospitalization, Other)
  Sender: FDA-Public Use
  Company Number: US_030896785

PATIENT
  Sex: Female

DRUGS (1)
  1. HUMULIN 70/30 [Suspect]
     Indication: DIABETES MELLITUS INSULIN-DEPENDENT

REACTIONS (5)
  - MALAISE [None]
  - MALIGNANT MELANOMA [None]
  - MASTECTOMY [None]
  - PHARMACEUTICAL PRODUCT COMPLAINT [None]
  - SQUAMOUS CELL CARCINOMA [None]
